FAERS Safety Report 9876837 (Version 2)
Quarter: 2014Q1

REPORT INFORMATION
  Report Type: Other
  Country: US (occurrence: US)
  Receive Date: 20140206
  Receipt Date: 20140206
  Transmission Date: 20141002
  Serious: Yes (Other)
  Sender: FDA-Public Use
  Company Number: US-ACORDA-ACO_37659_2013

PATIENT
  Age: 55 Year
  Sex: Female
  Weight: 52.15 kg

DRUGS (9)
  1. AMPYRA [Suspect]
     Indication: GAIT DISTURBANCE
     Dosage: 10 MG, QD
     Route: 048
     Dates: start: 2010, end: 2010
  2. AMPYRA [Suspect]
     Indication: NERVOUS SYSTEM DISORDER
     Dosage: 10 MG, BID
     Route: 048
     Dates: start: 2010, end: 2011
  3. AMPYRA [Suspect]
     Indication: GENERAL SYMPTOM
     Dosage: 10 MG, TID
     Route: 048
     Dates: start: 201105, end: 201401
  4. AMPYRA [Suspect]
     Dosage: 10 MG, BID
     Route: 048
     Dates: start: 201401
  5. BACLOFEN [Concomitant]
     Indication: PRODUCT USED FOR UNKNOWN INDICATION
     Dosage: 10 MG, TID
     Route: 065
  6. NALTREXONE [Concomitant]
     Indication: PRODUCT USED FOR UNKNOWN INDICATION
     Dosage: 4.5 MG, QD
     Route: 065
  7. ANTIHYPERTENSIVES [Concomitant]
     Indication: HYPERTENSION
     Dosage: UNK,UNK
     Route: 065
  8. VITAMIN D [Concomitant]
     Indication: PRODUCT USED FOR UNKNOWN INDICATION
     Dosage: UNK,UNK
     Route: 065
  9. MULTIVITAMINS [Concomitant]
     Indication: PRODUCT USED FOR UNKNOWN INDICATION
     Dosage: UNK,UNK
     Route: 065

REACTIONS (8)
  - Facial bones fracture [Unknown]
  - Foot fracture [Recovering/Resolving]
  - Fall [Recovering/Resolving]
  - Therapeutic response unexpected [Unknown]
  - Multiple sclerosis [Unknown]
  - Prescribed overdose [Unknown]
  - Asthenia [Recovered/Resolved]
  - Drug ineffective [Unknown]
